FAERS Safety Report 6748454-X (Version None)
Quarter: 2010Q2

REPORT INFORMATION
  Report Type: 
  Country: None (occurrence: None)
  Receive Date: 20100526
  Receipt Date: 20090402
  Transmission Date: 20101027
  Serious: No
  Sender: FDA-Public Use
  Company Number: 285888

PATIENT
  Age: 60 Year
  Sex: Female

DRUGS (7)
  1. ACTIVELLA [Suspect]
     Indication: HOT FLUSH
     Dosage: ORAL
     Route: 048
     Dates: start: 20030501
  2. ACTIVELLA [Suspect]
     Indication: MENORRHAGIA
     Dosage: ORAL
     Route: 048
     Dates: start: 20030501
  3. WELLBUTRIN [Concomitant]
  4. MAXZIDE [Concomitant]
  5. TENORMIN [Concomitant]
  6. TRIAMCINE (TRIAMCINOLONE ACETATE) [Concomitant]
  7. COUMADIN [Concomitant]

REACTIONS (2)
  - ARTHRITIS [None]
  - HEART RATE INCREASED [None]
